FAERS Safety Report 13408527 (Version 2)
Quarter: 2017Q4

REPORT INFORMATION
  Report Type: Spontaneous
  Country: US (occurrence: US)
  Receive Date: 20170406
  Receipt Date: 20171123
  Transmission Date: 20180320
  Serious: No
  Sender: FDA-Public Use
  Company Number: US-JNJFOC-20170224776

PATIENT
  Sex: Male

DRUGS (6)
  1. RISPERDAL [Suspect]
     Active Substance: RISPERIDONE
     Indication: BIPOLAR DISORDER
     Dosage: VARYING DOSES OF 0.25 MG, 0.5 MG, 1 MG, 2 MG AND 3 MG
     Route: 048
     Dates: start: 20020512, end: 20050112
  2. RISPERDAL [Suspect]
     Active Substance: RISPERIDONE
     Indication: CONDUCTION DISORDER
     Route: 048
     Dates: end: 20050228
  3. RISPERDAL M-TAB [Suspect]
     Active Substance: RISPERIDONE
     Indication: CONDUCTION DISORDER
     Dosage: VARYING DOSES OF 1 MG AND 2 MG
     Route: 048
     Dates: start: 20041004, end: 20041214
  4. RISPERDAL M-TAB [Suspect]
     Active Substance: RISPERIDONE
     Indication: BIPOLAR DISORDER
     Dosage: VARYING DOSES OF 1 MG AND 2 MG
     Route: 048
     Dates: start: 20041004, end: 20041214
  5. RISPERDAL [Suspect]
     Active Substance: RISPERIDONE
     Indication: CONDUCTION DISORDER
     Dosage: VARYING DOSES OF 0.25 MG, 0.5 MG, 1 MG, 2 MG AND 3 MG
     Route: 048
     Dates: start: 20020512, end: 20050112
  6. RISPERDAL [Suspect]
     Active Substance: RISPERIDONE
     Indication: BIPOLAR DISORDER
     Route: 048
     Dates: end: 20050228

REACTIONS (2)
  - Gynaecomastia [Unknown]
  - Emotional disorder [Unknown]
